FAERS Safety Report 5029724-2 (Version None)
Quarter: 2006Q2

REPORT INFORMATION
  Report Type: 
  Country: None (occurrence: None)
  Receive Date: 20060620
  Receipt Date: 20060607
  Transmission Date: 20061013
  Serious: Yes (Other)
  Sender: FDA-Public Use
  Company Number: US-JNJFOC-20060301099

PATIENT
  Sex: Male
  Weight: 102.06 kg

DRUGS (8)
  1. REMICADE [Suspect]
     Indication: COLITIS ULCERATIVE
     Route: 042
  2. PRETAZONE [Concomitant]
  3. PRILOSEC [Concomitant]
  4. DARVOCET [Concomitant]
  5. DARVOCET [Concomitant]
  6. XALATAN [Concomitant]
     Route: 047
  7. TIMOPTIC [Concomitant]
     Route: 047
  8. ASACOL [Concomitant]
     Dosage: RECENTLY STOPPED

REACTIONS (5)
  - CHEST DISCOMFORT [None]
  - DIZZINESS [None]
  - HEADACHE [None]
  - MYOPATHY [None]
  - PERIPHERAL MOTOR NEUROPATHY [None]
